FAERS Safety Report 20063621 (Version 1)
Quarter: 2021Q4

REPORT INFORMATION
  Report Type: Spontaneous
  Country: BR (occurrence: None)
  Receive Date: 20211112
  Receipt Date: 20211112
  Transmission Date: 20220303
  Serious: Yes (Death, Other)
  Sender: FDA-Public Use
  Company Number: 2021A805092

PATIENT
  Sex: Female

DRUGS (1)
  1. OLAPARIB [Suspect]
     Active Substance: OLAPARIB
     Indication: Ovarian cancer
     Dosage: 600 MILLIGRAM. REDUCED DOSE600.0MG UNKNOWN
     Route: 048

REACTIONS (3)
  - Malignant neoplasm progression [Fatal]
  - Product prescribing issue [Unknown]
  - Product availability issue [Unknown]
